FAERS Safety Report 4800140-9 (Version None)
Quarter: 2005Q4

REPORT INFORMATION
  Report Type: 
  Country: None (occurrence: None)
  Receive Date: 20051017
  Receipt Date: 20051011
  Transmission Date: 20060501
  Serious: Yes (Other)
  Sender: FDA-Public Use
  Company Number: JP-JPN-A20052431

PATIENT
  Age: 34 Year
  Sex: Male

DRUGS (3)
  1. MODACIN [Suspect]
     Dosage: 2G TWICE PER DAY
     Route: 042
     Dates: start: 20051003, end: 20051004
  2. OZEX [Concomitant]
     Route: 048
  3. LORCAM [Concomitant]
     Route: 048

REACTIONS (2)
  - DEAFNESS [None]
  - TINNITUS [None]
